FAERS Safety Report 6178205-1 (Version None)
Quarter: 2009Q2

REPORT INFORMATION
  Report Type: 
  Country: None (occurrence: None)
  Receive Date: 20090504
  Receipt Date: 20090430
  Transmission Date: 20091009
  Serious: Yes (Other)
  Sender: FDA-Public Use
  Company Number: A0778688A

PATIENT
  Age: 43 Year
  Sex: Female

DRUGS (1)
  1. ALLI [Suspect]
     Dates: end: 20090403

REACTIONS (3)
  - ABDOMINAL PAIN UPPER [None]
  - NEPHROLITHIASIS [None]
  - SLEEP DISORDER [None]
